FAERS Safety Report 7241935-4 (Version None)
Quarter: 2011Q1

REPORT INFORMATION
  Report Type: 
  Country: None (occurrence: None)
  Receive Date: 20110124
  Receipt Date: 20110120
  Transmission Date: 20110831
  Serious: Yes (Hospitalization)
  Sender: FDA-Public Use
  Company Number: US-ABBOTT-11P-163-0699718-00

PATIENT
  Sex: Female
  Weight: 63.56 kg

DRUGS (24)
  1. ASTEPRO [Concomitant]
     Indication: PRODUCT USED FOR UNKNOWN INDICATION
     Route: 045
  2. LUNESTA [Concomitant]
     Indication: FIBROMYALGIA
  3. HUMIRA [Suspect]
     Indication: PSORIATIC ARTHROPATHY
     Dates: start: 20090101, end: 20100201
  4. METHYLPREDNISOLONE [Suspect]
     Indication: PSORIATIC ARTHROPATHY
  5. HYDROCODONE [Concomitant]
     Dosage: 5/325 MILLIGRAMS
  6. DECONGESTANT [Concomitant]
     Indication: HYPERSENSITIVITY
  7. GLUCOSAMINE [Concomitant]
     Indication: MEDICAL DIET
  8. SINGULAIR [Concomitant]
     Indication: HYPERSENSITIVITY
  9. ZOCOR [Concomitant]
     Indication: BLOOD CHOLESTEROL INCREASED
     Dates: start: 20100101
  10. DIGOXIN [Concomitant]
     Indication: HEART RATE INCREASED
  11. ZYRTEC [Concomitant]
     Indication: HYPERSENSITIVITY
  12. SAVELLA [Concomitant]
     Indication: FIBROMYALGIA
  13. ESTEROL [Concomitant]
     Indication: MENOPAUSE
  14. MULTI-VITAMIN [Concomitant]
     Indication: VITAMIN SUPPLEMENTATION
  15. CALCIUM [Concomitant]
     Indication: MINERAL SUPPLEMENTATION
  16. VITAMIN D [Concomitant]
     Indication: VITAMIN SUPPLEMENTATION
  17. HUMIRA [Suspect]
     Dates: start: 20101101
  18. FENOFIBRATE [Concomitant]
     Indication: BLOOD CHOLESTEROL INCREASED
     Dates: start: 20100101
  19. HYDROCODONE [Concomitant]
     Indication: PAIN
     Dosage: 2.5/500 MILLIGRAMS
  20. LYRICA [Concomitant]
     Indication: FIBROMYALGIA
  21. METOPROLOL TARTRATE [Concomitant]
     Indication: HYPERTENSION
  22. CLONIDINE [Concomitant]
     Indication: HYPERTENSION
  23. FISH OIL [Concomitant]
     Indication: MEDICAL DIET
  24. PANTOPRAZOLE [Concomitant]
     Indication: ABDOMINAL DISCOMFORT

REACTIONS (10)
  - PULMONARY EMBOLISM [None]
  - DYSPNOEA EXERTIONAL [None]
  - DIPLOPIA [None]
  - UPPER RESPIRATORY TRACT INFECTION [None]
  - BLOOD CHOLESTEROL INCREASED [None]
  - DIABETES MELLITUS [None]
  - DRY EYE [None]
  - APHASIA [None]
  - PAIN IN EXTREMITY [None]
  - VISUAL ACUITY REDUCED [None]
